FAERS Safety Report 22098671 (Version 2)
Quarter: 2023Q2

REPORT INFORMATION
  Report Type: Spontaneous
  Country: US (occurrence: US)
  Receive Date: 20230315
  Receipt Date: 20230407
  Transmission Date: 20230722
  Serious: Yes (Other)
  Sender: FDA-Public Use
  Company Number: US-BRISTOL-MYERS SQUIBB COMPANY-2023-036263

PATIENT
  Age: 70 Year
  Sex: Male
  Weight: 70.31 kg

DRUGS (32)
  1. POMALYST [Suspect]
     Active Substance: POMALIDOMIDE
     Indication: Plasma cell myeloma
     Dosage: DAILY 21 DAYS
     Route: 048
     Dates: start: 20210804
  2. POMALYST [Suspect]
     Active Substance: POMALIDOMIDE
     Dosage: ONCE DAILY 21 DAYS THEN 7 DAYS OFF
     Route: 048
     Dates: start: 202008
  3. POMALYST [Suspect]
     Active Substance: POMALIDOMIDE
     Dosage: 1 CAPSULE BY MOUTH EVERY DAY FOR 21 DAYS FOLLOW WITH A 7 DAYS REST
     Route: 048
     Dates: start: 20210331
  4. POMALYST [Suspect]
     Active Substance: POMALIDOMIDE
     Dosage: 1 CAPSULE BY MOUTH EVERY DAY ON DAYS 1 - 21 WITH 7 DAY REST
     Route: 048
     Dates: start: 20210830
  5. POMALYST [Suspect]
     Active Substance: POMALIDOMIDE
     Dosage: 1 CAPSULE BY MOUTH EVERY DAY FOR 21 DAYS FOLLOW WITH A 7 DAYS REST
     Route: 048
     Dates: start: 20211223
  6. POMALYST [Suspect]
     Active Substance: POMALIDOMIDE
     Dosage: 1 CAPSULE BY MOUTH EVERY DAY FOR 21 DAYS FOLLOW WITH A 7 DAYS REST, USE TO COMPLETE REMAINDER OF 28
     Route: 048
     Dates: start: 20220307
  7. POMALYST [Suspect]
     Active Substance: POMALIDOMIDE
     Dosage: 1 CAPSULE BY MOUTH EVERY DAY FOR 21 DAYS FOLLOW WITH A 7 DAYS REST
     Route: 048
     Dates: start: 20220701
  8. POMALYST [Suspect]
     Active Substance: POMALIDOMIDE
     Dosage: 1 CAPSULE BY MOUTH EVERY DAY FOR 21 DAYS FOLLOW WITH A 7 DAYS REST
     Route: 048
     Dates: start: 20220802
  9. POMALYST [Suspect]
     Active Substance: POMALIDOMIDE
     Dosage: 1 CAPSULE BY MOUTH EVERY DAY FOR 21 DAYS FOLLOW WITH A 7 DAYS REST
     Route: 048
     Dates: start: 20220830
  10. POMALYST [Suspect]
     Active Substance: POMALIDOMIDE
     Dosage: 1 CAPSULE BY MOUTH EVERY DAY FOR 21 DAYS FOLLOW WITH A 7 DAYS REST
     Route: 048
     Dates: start: 20230331
  11. POMALYST [Suspect]
     Active Substance: POMALIDOMIDE
     Dosage: ONCE DAILY 21 DAYS THEN 7 DAYS OFF
     Route: 048
     Dates: start: 20200203
  12. BRILINTA [Concomitant]
     Active Substance: TICAGRELOR
     Indication: Product used for unknown indication
  13. ASPIRIN [Concomitant]
     Active Substance: ASPIRIN
     Indication: Product used for unknown indication
  14. OLMESARTAN MEDOXOMIL [Concomitant]
     Active Substance: OLMESARTAN MEDOXOMIL
     Indication: Product used for unknown indication
  15. ALBUTEROL SULFATE [Concomitant]
     Active Substance: ALBUTEROL SULFATE
     Indication: Product used for unknown indication
     Dosage: 200 PUFFS, 8.5 GM, 2 PUFFS BY MOUTH EVERY 4 HOURS AS NEEDED.
     Route: 055
     Dates: start: 20211224
  16. QUETIAPINE [Concomitant]
     Active Substance: QUETIAPINE
     Indication: Product used for unknown indication
  17. SPIRIVA [Concomitant]
     Active Substance: TIOTROPIUM BROMIDE MONOHYDRATE
     Indication: Product used for unknown indication
  18. LOPERAMIDE [Concomitant]
     Active Substance: LOPERAMIDE
     Indication: Product used for unknown indication
  19. ERGOCALCIFEROL [Concomitant]
     Active Substance: ERGOCALCIFEROL
     Indication: Product used for unknown indication
     Dosage: SOFTGELS
  20. ACYCLOVIR [Concomitant]
     Active Substance: ACYCLOVIR
     Indication: Product used for unknown indication
     Route: 048
     Dates: start: 20210826
  21. AZITHROMYCIN [Concomitant]
     Active Substance: AZITHROMYCIN
     Indication: Product used for unknown indication
     Dosage: 6-PAK
     Route: 048
     Dates: start: 20220104
  22. AZITHROMYCIN [Concomitant]
     Active Substance: AZITHROMYCIN
     Dosage: 6-PAK
     Dates: start: 20211001
  23. BENZONATATE [Concomitant]
     Active Substance: BENZONATATE
     Indication: Cough
     Route: 048
     Dates: start: 20210109
  24. BENZONATATE [Concomitant]
     Active Substance: BENZONATATE
     Route: 048
     Dates: start: 20211001
  25. BUDESONIDE [Concomitant]
     Active Substance: BUDESONIDE
     Indication: Product used for unknown indication
     Dosage: FROM 160/4.5 MCG (120 INH), 2 PUFFS BY MOUTH TWICE DAILY RINSE MOUTH AFTER USE
     Route: 055
     Dates: start: 20211227
  26. CEFDINIR [Concomitant]
     Active Substance: CEFDINIR
     Indication: Product used for unknown indication
     Route: 048
     Dates: start: 20220104
  27. DULERA [Concomitant]
     Active Substance: FORMOTEROL FUMARATE DIHYDRATE\MOMETASONE FUROATE
     Indication: Product used for unknown indication
     Dosage: 200-5 MCG ORAL INHALER 120 INH
     Route: 048
     Dates: start: 20211116
  28. HYDRALAZINE [Concomitant]
     Active Substance: HYDRALAZINE HYDROCHLORIDE
     Indication: Product used for unknown indication
     Route: 048
     Dates: start: 20210819
  29. PREDNISONE [Concomitant]
     Active Substance: PREDNISONE
     Indication: Product used for unknown indication
     Dosage: 4 TABLETS BY MOUTH DAILY FOR 3 DAYS, 3 TABLETS DAILY FOR 3 DAYS, 2 TABLETS DAILY FOR 3 DAYS, THEN 1
     Route: 048
     Dates: start: 20211001
  30. PREDNISONE [Concomitant]
     Active Substance: PREDNISONE
     Dosage: DAILY 2 TABLETS (40 MG) EVERY DAY FOR 3 DAYS THEN TAKE 1 TABLET EVERY DAY FOR 3 DAYS
     Route: 048
     Dates: start: 20220104
  31. PREDNISONE [Concomitant]
     Active Substance: PREDNISONE
     Dosage: 4 TABLETS,?DAILY X3 TABLETS: 3?DAILY X3 TABLETS: 2?DAILY X3 TABLETS: AND 1 DAILY X3 DAYS
     Dates: start: 20211022
  32. NORTRIPTYLINE [Concomitant]
     Active Substance: NORTRIPTYLINE
     Indication: Product used for unknown indication

REACTIONS (3)
  - Pyrexia [Unknown]
  - Chills [Unknown]
  - Renal impairment [Unknown]

NARRATIVE: CASE EVENT DATE: 20230301
